FAERS Safety Report 17934916 (Version 1)
Quarter: 2020Q2

REPORT INFORMATION
  Report Type: Spontaneous
  Country: US (occurrence: US)
  Receive Date: 20200623
  Receipt Date: 20200623
  Transmission Date: 20200714
  Serious: Yes (Other)
  Sender: FDA-Public Use
  Company Number: None

PATIENT
  Age: 73 Year
  Sex: Male
  Weight: 84 kg

DRUGS (4)
  1. CEFTRIAXONE 10GM [Suspect]
     Active Substance: CEFTRIAXONE
     Indication: DEVICE RELATED INFECTION
     Dosage: ?          OTHER FREQUENCY:Q 24 H;?
     Route: 042
     Dates: start: 20200611, end: 20200616
  2. CEFTRIAXONE 2GM [Suspect]
     Active Substance: CEFTRIAXONE
  3. HEPARIN [Concomitant]
     Active Substance: HEPARIN SODIUM
  4. SODIUM CHLORIDE. [Concomitant]
     Active Substance: SODIUM CHLORIDE

REACTIONS (3)
  - Pain in extremity [None]
  - Pain [None]
  - Infusion related reaction [None]

NARRATIVE: CASE EVENT DATE: 20200616
